FAERS Safety Report 9444293 (Version 3)
Quarter: 2013Q3

REPORT INFORMATION
  Report Type: Spontaneous
  Country: AR (occurrence: AR)
  Receive Date: 20130807
  Receipt Date: 20130924
  Transmission Date: 20140515
  Serious: Yes (Hospitalization)
  Sender: FDA-Public Use
  Company Number: AR-AMGEN-ARGSP2013055325

PATIENT
  Age: 63 Year
  Sex: Female

DRUGS (5)
  1. ENBREL [Suspect]
     Indication: RHEUMATOID ARTHRITIS
     Dosage: 50 MG, WEEKLY
     Route: 065
     Dates: start: 20130520, end: 201306
  2. ENBREL [Suspect]
     Dosage: UNK
     Route: 065
     Dates: start: 201309
  3. FOLIC ACID [Concomitant]
     Dosage: UNK
  4. DICLOFENAC [Concomitant]
     Dosage: UNK
  5. METHOTREXATE [Concomitant]
     Dosage: UNK

REACTIONS (12)
  - Myocardial infarction [Recovering/Resolving]
  - Pulmonary thrombosis [Recovering/Resolving]
  - Cough [Recovering/Resolving]
  - Agitation [Recovering/Resolving]
  - Chest discomfort [Recovering/Resolving]
  - Hypotension [Recovering/Resolving]
  - Pulse absent [Recovering/Resolving]
  - Asthenia [Recovering/Resolving]
  - Depressed mood [Recovering/Resolving]
  - Local swelling [Recovering/Resolving]
  - Muscular weakness [Not Recovered/Not Resolved]
  - Pain [Recovered/Resolved]
